FAERS Safety Report 9451197 (Version 1)
Quarter: 2013Q3

REPORT INFORMATION
  Report Type: Report from Study
  Country: US (occurrence: US)
  Receive Date: 20130809
  Receipt Date: 20130809
  Transmission Date: 20140515
  Serious: Yes (Hospitalization, Other)
  Sender: FDA-Public Use
  Company Number: US-ABBOTT-13P-163-1129445-00

PATIENT
  Age: 20 Year
  Sex: Female

DRUGS (4)
  1. HUMIRA [Suspect]
     Indication: CROHN^S DISEASE
  2. AZATHIOPRINE [Concomitant]
     Indication: PRODUCT USED FOR UNKNOWN INDICATION
  3. TRAMADOL [Concomitant]
     Indication: PAIN
  4. PERCOCET [Concomitant]
     Indication: PAIN

REACTIONS (22)
  - Deafness [Unknown]
  - Allergic respiratory symptom [Unknown]
  - Skin infection [Unknown]
  - Allergic oedema [Unknown]
  - Hypersensitivity [Unknown]
  - Staphylococcal infection [Not Recovered/Not Resolved]
  - Otitis externa [Unknown]
  - Mastoiditis [Unknown]
  - Labyrinthitis [Unknown]
  - Scab [Unknown]
  - Ear haemorrhage [Unknown]
  - Seborrhoeic dermatitis [Unknown]
  - Hypoaesthesia [Unknown]
  - Vomiting [Unknown]
  - Weight decreased [Unknown]
  - Headache [Unknown]
  - Abdominal pain [Unknown]
  - Large intestinal ulcer [Unknown]
  - Gastric ulcer [Unknown]
  - Nausea [Unknown]
  - Diarrhoea [Unknown]
  - Nasal septum deviation [Unknown]
